FAERS Safety Report 17715932 (Version 1)
Quarter: 2020Q2

REPORT INFORMATION
  Report Type: Report from Study
  Country: None (occurrence: CO)
  Receive Date: 20200428
  Receipt Date: 20200428
  Transmission Date: 20200714
  Serious: Yes (Hospitalization)
  Sender: FDA-Public Use
  Company Number: CO-ABBVIE-20K-036-3379006-00

PATIENT
  Age: 57 Year
  Sex: Male
  Weight: 84 kg

DRUGS (2)
  1. HUMIRA [Suspect]
     Active Substance: ADALIMUMAB
     Indication: PSORIASIS
     Route: 058
     Dates: start: 20161202
  2. HUMIRA [Suspect]
     Active Substance: ADALIMUMAB
     Indication: PSORIASIS
     Route: 058
     Dates: end: 20200408

REACTIONS (7)
  - Skin disorder [Recovering/Resolving]
  - Skin mass [Unknown]
  - Contusion [Recovering/Resolving]
  - Erythema [Unknown]
  - Purulent discharge [Unknown]
  - Skin discolouration [Unknown]
  - Peau d^orange [Recovering/Resolving]

NARRATIVE: CASE EVENT DATE: 202001
